FAERS Safety Report 5676637-9 (Version None)
Quarter: 2008Q1

REPORT INFORMATION
  Report Type: 
  Country: None (occurrence: None)
  Receive Date: 20080324
  Receipt Date: 20080313
  Transmission Date: 20080703
  Serious: Yes (Other)
  Sender: FDA-Public Use
  Company Number: US-JNJFOC-20080105259

PATIENT
  Sex: Female
  Weight: 48.54 kg

DRUGS (15)
  1. REMICADE [Suspect]
     Route: 042
  2. REMICADE [Suspect]
     Indication: RHEUMATOID ARTHRITIS
     Route: 042
  3. METHOTREXATE [Suspect]
     Indication: DRUG USE FOR UNKNOWN INDICATION
  4. GREEN TEA [Concomitant]
  5. PREDNISONE [Concomitant]
  6. ACETAMINOPHEN [Concomitant]
  7. GABAPENTIN [Concomitant]
  8. FOLATE [Concomitant]
  9. IRON SUPPLEMENT [Concomitant]
  10. LEUCOVORIN CALCIUM [Concomitant]
  11. PREVACID [Concomitant]
  12. BONIVA [Concomitant]
  13. FLURAZEPAM [Concomitant]
  14. BENADRYL [Concomitant]
  15. SAM-E [Concomitant]

REACTIONS (6)
  - ANAEMIA [None]
  - LEUKOPENIA [None]
  - NEUTROPENIA [None]
  - RED CELL DISTRIBUTION WIDTH INCREASED [None]
  - RHEUMATOID ARTHRITIS [None]
  - VIRAL INFECTION [None]
